FAERS Safety Report 8758387 (Version 1)
Quarter: 2012Q4

REPORT INFORMATION
  Report Type: Spontaneous
  Country: US (occurrence: None)
  Receive Date: 20120828
  Receipt Date: 20120828
  Transmission Date: 20130627
  Serious: Yes (Life-Threatening)
  Sender: FDA-Public Use
  Company Number: None

PATIENT
  Age: 79 Year
  Sex: Female
  Weight: 66.3 kg

DRUGS (2)
  1. LISPRO [Suspect]
     Indication: DIABETES
     Dosage: 1-20 units per sliding scale TID sq one day
     Route: 058
  2. GLYBURIDE [Suspect]
     Dosage: chronic home med
     Route: 048

REACTIONS (4)
  - Nausea [None]
  - Vomiting [None]
  - Renal failure acute [None]
  - Hypoglycaemia [None]
